FAERS Safety Report 17156337 (Version 1)
Quarter: 2019Q4

REPORT INFORMATION
  Report Type: Spontaneous
  Country: US (occurrence: US)
  Receive Date: 20191216
  Receipt Date: 20191216
  Transmission Date: 20200122
  Serious: Yes (Hospitalization, Other)
  Sender: FDA-Public Use
  Company Number: US-AUROBINDO-AUR-APL-2019-103414

PATIENT
  Age: 62 Year
  Sex: Female

DRUGS (2)
  1. FLECAINIDE [Suspect]
     Active Substance: FLECAINIDE
     Indication: ATRIAL FIBRILLATION
     Dosage: 200 MILLIGRAM, ONCE A DAY (FOR 5 YEARS)
     Route: 065
  2. GARENOXACIN [Concomitant]
     Active Substance: GARENOXACIN
     Indication: ENTERITIS INFECTIOUS
     Dosage: 400 MILLIGRAM, ONCE A DAY
     Route: 065

REACTIONS (7)
  - Atrial fibrillation [Recovering/Resolving]
  - Phospholipidosis [Recovering/Resolving]
  - Ventricular tachycardia [Recovering/Resolving]
  - Cardiac failure congestive [Recovering/Resolving]
  - Cardio-respiratory arrest [Recovering/Resolving]
  - Toxicity to various agents [Recovering/Resolving]
  - Ejection fraction [Recovering/Resolving]
